FAERS Safety Report 20473355 (Version 13)
Quarter: 2022Q4

REPORT INFORMATION
  Report Type: Report from Study
  Country: US (occurrence: US)
  Receive Date: 20220215
  Receipt Date: 20221026
  Transmission Date: 20230112
  Serious: No
  Sender: FDA-Public Use
  Company Number: US-NOVARTISTESTPH-NVSC2022US033704

PATIENT
  Sex: Female

DRUGS (4)
  1. COSENTYX [Suspect]
     Active Substance: SECUKINUMAB
     Indication: Psoriatic arthropathy
     Dosage: UNK
     Route: 065
  2. COSENTYX [Suspect]
     Active Substance: SECUKINUMAB
     Dosage: 300 MG
     Route: 065
  3. COSENTYX [Suspect]
     Active Substance: SECUKINUMAB
     Dosage: UNK
     Route: 065
  4. COSENTYX [Suspect]
     Active Substance: SECUKINUMAB
     Dosage: 300 MG, QMO
     Route: 065

REACTIONS (16)
  - Injection site paraesthesia [Unknown]
  - Pain in extremity [Unknown]
  - Joint range of motion decreased [Unknown]
  - Peripheral swelling [Unknown]
  - Maternal exposure during breast feeding [Unknown]
  - Therapeutic product effect incomplete [Unknown]
  - Injection site pain [Unknown]
  - Muscle twitching [Unknown]
  - Musculoskeletal stiffness [Unknown]
  - Discomfort [Unknown]
  - Psoriasis [Unknown]
  - Pruritus [Unknown]
  - Needle issue [Unknown]
  - Device defective [Unknown]
  - Accidental exposure to product [Unknown]
  - Incorrect dose administered [Unknown]
